FAERS Safety Report 23094452 (Version 1)
Quarter: 2023Q4

REPORT INFORMATION
  Report Type: Spontaneous
  Country: IT (occurrence: IT)
  Receive Date: 20231023
  Receipt Date: 20231023
  Transmission Date: 20240110
  Serious: Yes (Death, Life-Threatening, Hospitalization, Other)
  Sender: FDA-Public Use
  Company Number: IT-MLMSERVICE-20201203-2609154-1

PATIENT
  Age: 68 Year
  Sex: Male

DRUGS (5)
  1. HEPARIN [Suspect]
     Active Substance: HEPARIN SODIUM
     Indication: Anticoagulant therapy
     Dosage: 7500 IU
     Route: 040
  2. ENOXAPARIN SODIUM [Suspect]
     Active Substance: ENOXAPARIN SODIUM
     Indication: Pneumonia
     Dosage: UNK
  3. ASPIRIN [Concomitant]
     Active Substance: ASPIRIN
     Dosage: 300 MG
     Route: 042
  4. TICAGRELOR [Concomitant]
     Active Substance: TICAGRELOR
     Dosage: 180 MG
     Route: 048
  5. TICAGRELOR [Concomitant]
     Active Substance: TICAGRELOR
     Route: 048

REACTIONS (5)
  - Coronary artery occlusion [Fatal]
  - Heparin-induced thrombocytopenia [Fatal]
  - Platelet count decreased [Fatal]
  - Haemodynamic instability [Fatal]
  - Coronary artery thrombosis [Fatal]
